FAERS Safety Report 13410403 (Version 2)
Quarter: 2022Q1

REPORT INFORMATION
  Report Type: Spontaneous
  Country: US (occurrence: US)
  Receive Date: 20170406
  Receipt Date: 20220131
  Transmission Date: 20220423
  Serious: No
  Sender: FDA-Public Use
  Company Number: US-JNJFOC-20170306472

PATIENT
  Sex: Male

DRUGS (2)
  1. RISPERDAL [Suspect]
     Active Substance: RISPERIDONE
     Indication: Product used for unknown indication
     Route: 048
  2. INVEGA [Suspect]
     Active Substance: PALIPERIDONE
     Indication: Product used for unknown indication
     Route: 048

REACTIONS (8)
  - Drooling [Unknown]
  - Muscle twitching [Unknown]
  - Gynaecomastia [Unknown]
  - Social anxiety disorder [Unknown]
  - Depression [Unknown]
  - Hyperglycaemia [Unknown]
  - Weight increased [Unknown]
  - Breast discharge [Unknown]
